FAERS Safety Report 9935709 (Version 1)
Quarter: 2014Q1

REPORT INFORMATION
  Report Type: Spontaneous
  Country: US (occurrence: US)
  Receive Date: 20140228
  Receipt Date: 20140228
  Transmission Date: 20141002
  Serious: No
  Sender: FDA-Public Use
  Company Number: US-AMGEN-USASP2013083423

PATIENT
  Age: 19 Year
  Sex: Female
  Weight: 79.37 kg

DRUGS (4)
  1. ENBREL [Suspect]
     Indication: PRODUCT USED FOR UNKNOWN INDICATION
     Dosage: 50 MG, QWK
     Route: 058
     Dates: start: 20130913
  2. MULTIVITAMINS, PLAIN [Concomitant]
     Dosage: UNK
  3. FOLIC ACID [Concomitant]
     Dosage: UNK
  4. METHOTREXATE [Concomitant]
     Dosage: 2.5 MG, UNK

REACTIONS (5)
  - Pain in extremity [Recovered/Resolved]
  - Local swelling [Recovered/Resolved]
  - Condition aggravated [Recovered/Resolved]
  - Injection site erythema [Recovered/Resolved]
  - Injection site swelling [Recovered/Resolved]
